FAERS Safety Report 12101562 (Version 4)
Quarter: 2016Q2

REPORT INFORMATION
  Report Type: Spontaneous
  Country: AU (occurrence: AU)
  Receive Date: 20160222
  Receipt Date: 20160510
  Transmission Date: 20160815
  Serious: Yes (Life-Threatening, Hospitalization)
  Sender: FDA-Public Use
  Company Number: AU-ELI_LILLY_AND_COMPANY-AU201602005695

PATIENT
  Age: 9 Year
  Sex: Male
  Weight: 60.8 kg

DRUGS (3)
  1. AMLODIPINE [Concomitant]
     Active Substance: AMLODIPINE BESYLATE
     Indication: HYPERTENSION
     Dosage: 5 MG, QD
     Route: 048
     Dates: start: 20151224
  2. LUCRIN [Concomitant]
     Active Substance: LEUPROLIDE ACETATE
     Indication: PRECOCIOUS PUBERTY
     Dosage: 22.5 MG, OTHER
     Route: 030
     Dates: start: 20110825
  3. HUMATROPE [Suspect]
     Active Substance: SOMATROPIN
     Indication: GROWTH HORMONE DEFICIENCY
     Dosage: 1 MG, 6/W
     Route: 058
     Dates: start: 20120503, end: 20151202

REACTIONS (1)
  - Optic glioma [Not Recovered/Not Resolved]

NARRATIVE: CASE EVENT DATE: 20151122
